FAERS Safety Report 4450418-6 (Version None)
Quarter: 2004Q3

REPORT INFORMATION
  Report Type: 
  Country: None (occurrence: None)
  Receive Date: 20040914
  Receipt Date: 20040827
  Transmission Date: 20050211
  Serious: Yes (Hospitalization)
  Sender: FDA-Public Use
  Company Number: A01200404105

PATIENT
  Age: 47 Year
  Sex: Male

DRUGS (5)
  1. PLAVIX [Suspect]
     Indication: CORONARY ARTERIAL STENT INSERTION
     Route: 048
     Dates: start: 20030901, end: 20031001
  2. PHENYTOIN SODIUM [Suspect]
     Indication: CONVULSION
     Dates: start: 20030901, end: 20031001
  3. GLAZIDIM (CEFTAZIDIME) [Concomitant]
  4. DILFUCAN (FLUCONAZOLE) [Concomitant]
  5. VANCOMYCIN [Concomitant]

REACTIONS (2)
  - POSTOPERATIVE INFECTION [None]
  - TOXIC EPIDERMAL NECROLYSIS [None]
